FAERS Safety Report 9134788 (Version 1)
Quarter: 2013Q1

REPORT INFORMATION
  Report Type: Spontaneous
  Country: US (occurrence: US)
  Receive Date: 20130304
  Receipt Date: 20130304
  Transmission Date: 20140127
  Serious: No
  Sender: FDA-Public Use
  Company Number: US-PFIZER INC-2013074870

PATIENT
  Age: 46 Year
  Sex: Female
  Weight: 78.5 kg

DRUGS (11)
  1. LYRICA [Suspect]
     Indication: NEURALGIA
     Dosage: 75 MG IN THE MORNING AND 150 MG IN THE EVENING (2X/DAY)
     Dates: start: 2013
  2. VERAPAMIL HCL [Suspect]
     Indication: HYPERTENSION
     Dosage: 240 MG, UNK
  3. VERAPAMIL HCL [Suspect]
     Indication: PROPHYLAXIS
  4. MORPHINE SULFATE [Concomitant]
     Indication: PAIN
     Dosage: 50 MG, 2X/DAY
  5. ATIVAN [Concomitant]
     Indication: ANXIETY
     Dosage: 1 MG, 2X/DAY
  6. LISDEXAMFETAMINE DIMESYLATE [Concomitant]
     Indication: DEPRESSION
     Dosage: 70 MG, UNK
  7. WELLBUTRIN [Concomitant]
     Indication: DEPRESSION
     Dosage: 450 MG, UNK
  8. HYZAAR [Concomitant]
     Indication: HYPERTENSION
     Dosage: 100/12.5 MG, UNK
  9. SYNTHROID [Concomitant]
     Indication: HYPOTHYROIDISM
     Dosage: 88 UG, UNK
  10. CYMBALTA [Concomitant]
     Indication: DEPRESSION
     Dosage: 60 MG, 2X/DAY
  11. CYMBALTA [Concomitant]
     Indication: NEURALGIA

REACTIONS (1)
  - Weight increased [Unknown]
